FAERS Safety Report 17431328 (Version 2)
Quarter: 2020Q1

REPORT INFORMATION
  Report Type: Spontaneous
  Country: US (occurrence: US)
  Receive Date: 20200218
  Receipt Date: 20200327
  Transmission Date: 20200409
  Serious: Yes (Other)
  Sender: FDA-Public Use
  Company Number: NVSC2020US040219

PATIENT
  Age: 82 Year
  Sex: Female
  Weight: 110 kg

DRUGS (4)
  1. EYLEA [Concomitant]
     Active Substance: AFLIBERCEPT
     Indication: PRODUCT USED FOR UNKNOWN INDICATION
     Dosage: UNK (OD AND OS FOR 4 WEEKS)
     Route: 065
  2. BEOVU [Suspect]
     Active Substance: BROLUCIZUMAB-DBLL
     Dosage: UNK (6 MG/0.05 ML, OS)
     Route: 031
     Dates: start: 20200124
  3. BEOVU [Suspect]
     Active Substance: BROLUCIZUMAB-DBLL
     Dosage: UNK (6 MG/0.05 ML, OD)
     Route: 031
     Dates: start: 20200131
  4. BEOVU [Suspect]
     Active Substance: BROLUCIZUMAB-DBLL
     Indication: NEOVASCULAR AGE-RELATED MACULAR DEGENERATION
     Dosage: 6 MG, QMO
     Route: 047
     Dates: start: 20200201, end: 20200210

REACTIONS (11)
  - Corneal oedema [Unknown]
  - Ocular hyperaemia [Unknown]
  - Eye pain [Recovered/Resolved]
  - Vitreous floaters [Unknown]
  - Visual impairment [Unknown]
  - Eye pruritus [Unknown]
  - Vision blurred [Unknown]
  - Iridocyclitis [Unknown]
  - Photophobia [Recovered/Resolved]
  - Anterior chamber inflammation [Not Recovered/Not Resolved]
  - Insomnia [Unknown]

NARRATIVE: CASE EVENT DATE: 20200202
